FAERS Safety Report 9164672 (Version 2)
Quarter: 2013Q1

REPORT INFORMATION
  Report Type: Spontaneous
  Country: GB (occurrence: None)
  Receive Date: 20130221
  Receipt Date: 20130319
  Transmission Date: 20140127
  Serious: Yes (Other)
  Sender: FDA-Public Use
  Company Number: 2013-00855

PATIENT
  Age: 41 Year
  Sex: Female

DRUGS (5)
  1. DIAZEPAM [Suspect]
     Dates: start: 201207
  2. KEPRA [Suspect]
  3. LEVOTHYROX (LEVOTHYROXINE SODIUM) INFUSION [Suspect]
  4. ACETYLSALICYLIC ACID (ACETYLSALICYLIC ACID) [Suspect]
  5. SERTRALINE (SERTRALINE) (SERTRALINE) [Concomitant]

REACTIONS (14)
  - Hallucination, visual [None]
  - Palpitations [None]
  - Abdominal discomfort [None]
  - Hyperhidrosis [None]
  - Abdominal pain upper [None]
  - Malaise [None]
  - Vomiting [None]
  - Diarrhoea [None]
  - Insomnia [None]
  - Feeling abnormal [None]
  - Weight decreased [None]
  - Drug interaction [None]
  - Convulsion [None]
  - Suicidal ideation [None]
